FAERS Safety Report 19686535 (Version 1)
Quarter: 2021Q3

REPORT INFORMATION
  Report Type: Spontaneous
  Country: BR (occurrence: BR)
  Receive Date: 20210811
  Receipt Date: 20210811
  Transmission Date: 20211014
  Serious: Yes (Other)
  Sender: FDA-Public Use
  Company Number: BR-SA-2021SA258553

PATIENT
  Age: 57 Year
  Sex: Male

DRUGS (1)
  1. STILNOX [Suspect]
     Active Substance: ZOLPIDEM TARTRATE
     Indication: INSOMNIA
     Dosage: UNK
     Route: 065

REACTIONS (4)
  - Altered state of consciousness [Unknown]
  - Road traffic accident [Unknown]
  - Somnambulism [Unknown]
  - Memory impairment [Unknown]
